FAERS Safety Report 10867539 (Version 2)
Quarter: 2015Q2

REPORT INFORMATION
  Report Type: Report from Study
  Country: HU (occurrence: HU)
  Receive Date: 20150225
  Receipt Date: 20150413
  Transmission Date: 20150821
  Serious: Yes (Other)
  Sender: FDA-Public Use
  Company Number: HU-JNJFOC-20130816152

PATIENT
  Age: 52 Year
  Sex: Male

DRUGS (14)
  1. XANAX SR [Concomitant]
     Indication: DEPRESSION
     Route: 065
     Dates: start: 2000
  2. METHOTREXATE [Concomitant]
     Active Substance: METHOTREXATE
     Indication: PSORIASIS
     Route: 065
     Dates: start: 20110516
  3. STELARA [Suspect]
     Active Substance: USTEKINUMAB
     Indication: PSORIASIS
     Route: 058
     Dates: start: 20110711, end: 20150218
  4. LOKREN [Concomitant]
     Active Substance: BETAXOLOL HYDROCHLORIDE
     Indication: HYPERTENSION
     Route: 065
  5. REMERON [Concomitant]
     Active Substance: MIRTAZAPINE
     Indication: DEPRESSION
     Route: 065
     Dates: start: 2000
  6. FOLIC ACID. [Concomitant]
     Active Substance: FOLIC ACID
     Route: 065
     Dates: start: 20110516
  7. PREDUCTAL MR [Concomitant]
     Active Substance: TRIMETAZIDINE DIHYDROCHLORIDE
     Indication: ANGINA PECTORIS
     Route: 065
  8. ASPIRIN. [Concomitant]
     Active Substance: ASPIRIN
     Indication: ANGINA PECTORIS
     Route: 065
  9. LOCREN [Concomitant]
     Indication: HYPERTENSION
     Route: 065
  10. COAXIL [Concomitant]
     Indication: DEPRESSION
     Route: 065
     Dates: start: 2000
  11. MERAMYL [Concomitant]
     Indication: HYPERTENSION
     Dosage: 5/25 MG; IN THE MORNING
     Route: 065
  12. FLUTICASONE PROPIONATE. [Concomitant]
     Active Substance: FLUTICASONE PROPIONATE
     Indication: ASTHMA
     Route: 055
     Dates: start: 20141104
  13. SEDUXEN [Concomitant]
     Indication: ANXIETY
     Route: 065
  14. VENTOLIN [Concomitant]
     Active Substance: ALBUTEROL SULFATE
     Indication: ASTHMA
     Route: 065

REACTIONS (8)
  - Abdominal distension [Unknown]
  - Hepatic steatosis [Recovered/Resolved]
  - Nausea [Unknown]
  - Hepatomegaly [Recovered/Resolved]
  - Nasopharyngitis [Recovered/Resolved]
  - Asthma [Not Recovered/Not Resolved]
  - Pain in extremity [Unknown]
  - Axillary pain [Unknown]

NARRATIVE: CASE EVENT DATE: 20110808
